FAERS Safety Report 6324758-X (Version None)
Quarter: 2009Q3

REPORT INFORMATION
  Report Type: 
  Country: None (occurrence: None)
  Receive Date: 20090824
  Receipt Date: 20090504
  Transmission Date: 20100115
  Serious: No
  Sender: FDA-Public Use
  Company Number: US-ABBOTT-09P-163-0571458-00

PATIENT
  Sex: Female
  Weight: 78.996 kg

DRUGS (3)
  1. NIASPAN [Suspect]
     Indication: BLOOD TRIGLYCERIDES INCREASED
     Dates: start: 20090424, end: 20090425
  2. NIASPAN [Suspect]
     Dates: start: 20090427
  3. IBUPROFEN [Concomitant]
     Indication: DRUG USE FOR UNKNOWN INDICATION

REACTIONS (4)
  - DRUG DOSE OMISSION [None]
  - FLUSHING [None]
  - HEADACHE [None]
  - HYPOAESTHESIA [None]
